FAERS Safety Report 6018132-3 (Version None)
Quarter: 2008Q4

REPORT INFORMATION
  Report Type: 
  Country: None (occurrence: None)
  Receive Date: 20081223
  Receipt Date: 20081216
  Transmission Date: 20090506
  Serious: No
  Sender: FDA-Public Use
  Company Number: BR-ELI_LILLY_AND_COMPANY-BR200812002390

PATIENT
  Age: 72 Year
  Sex: Male

DRUGS (5)
  1. CIALIS [Suspect]
     Indication: ERECTILE DYSFUNCTION
     Dosage: UNK, AS NEEDED
     Route: 065
  2. TENADREN [Concomitant]
     Indication: BLOOD PRESSURE
     Dosage: 40 MG, UNK
  3. TENADREN [Concomitant]
     Dosage: 25 MG, UNK
  4. SIMVASTATIN [Concomitant]
     Indication: BLOOD CHOLESTEROL
  5. DOXAZOSIN MESYLATE [Concomitant]

REACTIONS (1)
  - VISION BLURRED [None]
